FAERS Safety Report 8261420-0 (Version None)
Quarter: 2012Q2

REPORT INFORMATION
  Report Type: 
  Country: None (occurrence: None)
  Receive Date: 20120405
  Receipt Date: 20120329
  Transmission Date: 20120825
  Serious: Yes (Hospitalization)
  Sender: FDA-Public Use
  Company Number: ES-PFIZER INC-2012080149

PATIENT
  Age: 54 Year
  Sex: Female

DRUGS (6)
  1. ZYVOX [Suspect]
     Indication: STAPHYLOCOCCAL ABSCESS
     Dosage: 600 MG, 2X/DAY
     Route: 048
     Dates: start: 20111227, end: 20120201
  2. SOLTRIM [Concomitant]
     Indication: URINARY TRACT INFECTION
     Dosage: UNK %, 3X/DAY
     Route: 042
     Dates: start: 20120113, end: 20120124
  3. PIPERACILLIN AND TAZOBACTAM [Concomitant]
     Dosage: UNK
     Route: 042
     Dates: start: 20120110, end: 20120101
  4. FLUCONAZOLE [Concomitant]
     Dosage: UNK
     Route: 048
     Dates: start: 20120110, end: 20120124
  5. CIPROFLOXACIN [Concomitant]
     Dosage: 500 MG, 2X/DAY
     Route: 042
     Dates: start: 20120130, end: 20120208
  6. CEFTRIAXONE [Concomitant]
     Dosage: 1 G, 2X/DAY
     Route: 042
     Dates: start: 20111227, end: 20120101

REACTIONS (4)
  - ALTERED STATE OF CONSCIOUSNESS [None]
  - HYPONATRAEMIA [None]
  - DELIRIUM [None]
  - TREMOR [None]
